FAERS Safety Report 21463108 (Version 1)
Quarter: 2022Q4

REPORT INFORMATION
  Report Type: Report from Study
  Country: US (occurrence: US)
  Receive Date: 20221017
  Receipt Date: 20221017
  Transmission Date: 20230113
  Serious: Yes (Other)
  Sender: FDA-Public Use
  Company Number: US-BoehringerIngelheim-2021-BI-109912

PATIENT
  Age: 69 Year
  Sex: Female

DRUGS (4)
  1. OFEV [Suspect]
     Active Substance: NINTEDANIB
     Indication: Idiopathic pulmonary fibrosis
     Route: 048
     Dates: start: 20210601, end: 20210712
  2. OFEV [Suspect]
     Active Substance: NINTEDANIB
     Indication: Interstitial lung disease
     Route: 048
     Dates: start: 20210713
  3. LAMICTAL [Suspect]
     Active Substance: LAMOTRIGINE
     Indication: Product used for unknown indication
  4. WELLBUTRIN [Suspect]
     Active Substance: BUPROPION HYDROCHLORIDE
     Indication: Product used for unknown indication
     Dates: end: 20220128

REACTIONS (31)
  - Pulmonary fibrosis [Unknown]
  - Gastrooesophageal reflux disease [Unknown]
  - Fatigue [Recovered/Resolved]
  - Nausea [Recovered/Resolved]
  - Memory impairment [Recovered/Resolved]
  - Balance disorder [Recovered/Resolved]
  - Fatigue [Unknown]
  - Diarrhoea [Recovered/Resolved]
  - Vomiting [Recovered/Resolved]
  - Nausea [Recovered/Resolved]
  - Blood sodium decreased [Unknown]
  - Arthralgia [Unknown]
  - Taste disorder [Not Recovered/Not Resolved]
  - Tremor [Recovered/Resolved]
  - Ageusia [Unknown]
  - Feeling abnormal [Unknown]
  - Balance disorder [Unknown]
  - Depression [Recovering/Resolving]
  - Feeling abnormal [Not Recovered/Not Resolved]
  - Feeling abnormal [Not Recovered/Not Resolved]
  - Nightmare [Not Recovered/Not Resolved]
  - Diarrhoea [Recovered/Resolved]
  - Disturbance in attention [Unknown]
  - Abnormal dreams [Unknown]
  - Multiple allergies [Unknown]
  - Dyspepsia [Not Recovered/Not Resolved]
  - Liver function test increased [Not Recovered/Not Resolved]
  - Alopecia [Not Recovered/Not Resolved]
  - Constipation [Not Recovered/Not Resolved]
  - General physical health deterioration [Unknown]
  - Rheumatoid arthritis [Unknown]

NARRATIVE: CASE EVENT DATE: 20210601
